FAERS Safety Report 15431594 (Version 1)
Quarter: 2018Q3

REPORT INFORMATION
  Report Type: Spontaneous
  Country: US (occurrence: US)
  Receive Date: 20180926
  Receipt Date: 20180926
  Transmission Date: 20181010
  Serious: No
  Sender: FDA-Public Use
  Company Number: US-B.I. PHARMACEUTICALS,INC./RIDGEFIELD-2018-BI-046655

PATIENT
  Age: 80 Year
  Sex: Female

DRUGS (1)
  1. SPIRIVA [Suspect]
     Active Substance: TIOTROPIUM BROMIDE MONOHYDRATE
     Indication: BRONCHITIS CHRONIC
     Dosage: ;  FORM STRENGTH: 18 MCG; FORMULATION: CAPSULE? ACTION(S) TAKEN: DOSE NOT CHANGED
     Route: 055
     Dates: start: 2013

REACTIONS (2)
  - Incorrect route of drug administration [Recovered/Resolved]
  - Dental caries [Not Recovered/Not Resolved]

NARRATIVE: CASE EVENT DATE: 201803
